FAERS Safety Report 9536305 (Version 1)
Quarter: 2013Q2

REPORT INFORMATION
  Report Type: Spontaneous
  Country: US (occurrence: None)
  Receive Date: 20130507
  Receipt Date: 20130507
  Transmission Date: 20140414
  Serious: Yes (Other)
  Sender: FDA-Public Use
  Company Number: PHEH2013US004985

PATIENT
  Sex: Female

DRUGS (10)
  1. AFINITOR (RAD) [Suspect]
     Indication: TUBEROUS SCLEROSIS
     Route: 048
     Dates: start: 20130125
  2. AFINITOR (RAD) [Suspect]
     Indication: ANGIOMYOLIPOMA
     Route: 048
     Dates: start: 20130125
  3. CLONAZEPAM (CLONAZEPAM) (CLONAZEPAM) [Concomitant]
  4. VALPROATE (VALPROATE SODIUM) [Concomitant]
  5. LEVOTHYROXINE [Concomitant]
  6. PREMARIN (ESTROGENS CONJUGATED) [Concomitant]
  7. BANZEL (RUFINAMIDE) [Concomitant]
  8. LEVETIRACETAM [Concomitant]
  9. LORAZEPAM [Concomitant]
  10. BENZYL ALCOHOL [Concomitant]

REACTIONS (1)
  - Convulsion [None]
